FAERS Safety Report 21599503 (Version 1)
Quarter: 2022Q4

REPORT INFORMATION
  Report Type: Report from Study
  Country: US (occurrence: US)
  Receive Date: 20221115
  Receipt Date: 20221115
  Transmission Date: 20230112
  Serious: Yes (Hospitalization, Other)
  Sender: FDA-Public Use
  Company Number: US-GILEAD-2022-0604909

PATIENT
  Age: 73 Year
  Sex: Female
  Weight: 40.8 kg

DRUGS (2)
  1. SACITUZUMAB GOVITECAN [Suspect]
     Active Substance: SACITUZUMAB GOVITECAN
     Indication: Breast cancer metastatic
     Dosage: 8.39 MG/KG (396MG) D1 AND D8 21 DAY CYCLE
     Route: 042
     Dates: start: 20220106, end: 20220106
  2. KEYTRUDA [Suspect]
     Active Substance: PEMBROLIZUMAB
     Indication: Breast cancer metastatic
     Dosage: 200 MG Q 21 DAYS
     Route: 042
     Dates: start: 20221006

REACTIONS (3)
  - Gastric ulcer [Unknown]
  - Duodenal obstruction [Unknown]
  - Central nervous system lesion [Unknown]

NARRATIVE: CASE EVENT DATE: 20221001
